FAERS Safety Report 12068490 (Version 1)
Quarter: 2016Q1

REPORT INFORMATION
  Report Type: Spontaneous
  Country: US (occurrence: US)
  Receive Date: 20160211
  Receipt Date: 20160211
  Transmission Date: 20160526
  Serious: No
  Sender: FDA-Public Use
  Company Number: US-ALLERGAN-1519132US

PATIENT
  Age: 43 Year
  Sex: Female
  Weight: 68.27 kg

DRUGS (4)
  1. LEXAPRO [Concomitant]
     Active Substance: ESCITALOPRAM OXALATE
     Indication: MOTION SICKNESS
     Dosage: 10 MG, QD
     Route: 048
  2. MAGNESIUM [Concomitant]
     Active Substance: MAGNESIUM
     Indication: MIGRAINE
     Route: 048
  3. BOTOX [Suspect]
     Active Substance: ONABOTULINUMTOXINA
     Indication: MIGRAINE
     Dosage: 155 UNITS, SINGLE
     Route: 030
     Dates: start: 20150901, end: 20150901
  4. KLONOPIN [Concomitant]
     Active Substance: CLONAZEPAM
     Indication: MOTION SICKNESS
     Dosage: .05 MG, QHS
     Route: 048

REACTIONS (5)
  - Muscular weakness [Unknown]
  - Headache [Not Recovered/Not Resolved]
  - Pain in jaw [Recovered/Resolved]
  - Eyelid ptosis [Recovered/Resolved]
  - Ear pain [Unknown]

NARRATIVE: CASE EVENT DATE: 20150901
